FAERS Safety Report 25262860 (Version 3)
Quarter: 2025Q4

REPORT INFORMATION
  Report Type: Spontaneous
  Country: GB (occurrence: GB)
  Receive Date: 20250502
  Receipt Date: 20251021
  Transmission Date: 20260118
  Serious: Yes (Hospitalization, Other)
  Sender: MYLAN
  Company Number: GB-MYLANLABS-2025M1036615

PATIENT
  Sex: Male

DRUGS (3)
  1. CLOZARIL [Suspect]
     Active Substance: CLOZAPINE
     Indication: Schizophrenia
     Dosage: UNK
     Dates: start: 20200302, end: 20250407
  2. CLOZARIL [Suspect]
     Active Substance: CLOZAPINE
     Dosage: UNK (ONE DOSE)
     Dates: start: 20250411, end: 20250411
  3. CLOZARIL [Suspect]
     Active Substance: CLOZAPINE
     Dosage: UNK (STARTED LOWER DOSE)

REACTIONS (4)
  - Hospitalisation [Unknown]
  - Schizophrenia [Not Recovered/Not Resolved]
  - Mental impairment [Not Recovered/Not Resolved]
  - Off label use [Unknown]

NARRATIVE: CASE EVENT DATE: 20250401
